FAERS Safety Report 20917392 (Version 5)
Quarter: 2022Q3

REPORT INFORMATION
  Report Type: Report from Study
  Country: US (occurrence: US)
  Receive Date: 20220606
  Receipt Date: 20220926
  Transmission Date: 20221026
  Serious: No
  Sender: FDA-Public Use
  Company Number: US-NOVARTISTESTPH-NVSC2022US128126

PATIENT
  Sex: Female

DRUGS (1)
  1. KESIMPTA [Suspect]
     Active Substance: OFATUMUMAB
     Indication: Product used for unknown indication
     Dosage: UNK UNK, QMO (EVERY 30 DAYS)
     Route: 065

REACTIONS (4)
  - Temperature intolerance [Unknown]
  - Headache [Unknown]
  - Asthenia [Unknown]
  - Inappropriate schedule of product administration [Unknown]
